FAERS Safety Report 18904414 (Version 1)
Quarter: 2021Q1

REPORT INFORMATION
  Report Type: Spontaneous
  Country: US (occurrence: US)
  Receive Date: 20210217
  Receipt Date: 20210217
  Transmission Date: 20210420
  Serious: Yes (Death, Hospitalization, Other)
  Sender: FDA-Public Use
  Company Number: US-ASTRAZENECA-2021A061316

PATIENT
  Sex: Male

DRUGS (1)
  1. IMFINZI [Suspect]
     Active Substance: DURVALUMAB
     Dosage: ONCE EVERY 2 WEEKS
     Route: 042

REACTIONS (3)
  - Pneumonia [Fatal]
  - Pulmonary oedema [Unknown]
  - Fatigue [Unknown]
